FAERS Safety Report 4373894-6 (Version None)
Quarter: 2004Q1

REPORT INFORMATION
  Report Type: 
  Country: None (occurrence: None)
  Receive Date: 20040305
  Receipt Date: 20031210
  Transmission Date: 20041129
  Serious: Yes (Other)
  Sender: FDA-Public Use
  Company Number: 2003UW16354

PATIENT
  Sex: Female

DRUGS (2)
  1. CRESTOR [Suspect]
     Dosage: 10 MG QD PO
     Route: 048
     Dates: start: 20031101
  2. ZETIA [Concomitant]

REACTIONS (1)
  - PAIN IN JAW [None]
